FAERS Safety Report 25888931 (Version 1)
Quarter: 2025Q4

REPORT INFORMATION
  Report Type: Spontaneous
  Country: TR (occurrence: TR)
  Receive Date: 20251007
  Receipt Date: 20251007
  Transmission Date: 20260118
  Serious: Yes (Other)
  Sender: Onesource Specialty Pharma
  Company Number: TR-STRIDES ARCOLAB LIMITED-2025OS000845

PATIENT
  Age: 4 Year
  Sex: Female

DRUGS (18)
  1. ETOPOSIDE [Suspect]
     Active Substance: ETOPOSIDE
     Indication: Alveolar soft part sarcoma metastatic
     Dosage: UNK, RECEIVED 2 CYCLES WITH IFOSFAMIDE
     Route: 065
     Dates: start: 2017, end: 2017
  2. ETOPOSIDE [Suspect]
     Active Substance: ETOPOSIDE
     Dosage: UNK, AS A PART OF ICE REGIMEN
     Route: 065
     Dates: start: 2018
  3. IFOSFAMIDE [Suspect]
     Active Substance: IFOSFAMIDE
     Indication: Alveolar soft part sarcoma metastatic
     Dosage: 2 CYCLES OF IFOSFAMIDE AND ETOPOSIDE
     Route: 065
     Dates: start: 2017, end: 2017
  4. IFOSFAMIDE [Suspect]
     Active Substance: IFOSFAMIDE
     Dosage: 2 ADDITIONAL CYCLES OF IFOSFAMIDE ALONE AS PER STANDARD ARST0332 PROTOCOL
     Route: 065
     Dates: start: 2017, end: 2017
  5. IFOSFAMIDE [Suspect]
     Active Substance: IFOSFAMIDE
     Dosage: UNK, AS A PART OF ICE REGIMEN
     Route: 065
     Dates: start: 2018
  6. VINCRISTINE [Suspect]
     Active Substance: VINCRISTINE
     Indication: Alveolar soft part sarcoma metastatic
     Dosage: UNK, AS A PART OF VAC-A REGIMEN; 4 CYCLES
     Route: 065
     Dates: start: 2017
  7. VINCRISTINE [Suspect]
     Active Substance: VINCRISTINE
     Dosage: UNK, AS A PART OF TCV REGIMEN
     Route: 065
     Dates: start: 2019
  8. VINCRISTINE [Suspect]
     Active Substance: VINCRISTINE
     Dosage: UNK, AS A PART OF VIT REGIMEN
     Route: 065
     Dates: start: 2020
  9. ACTINOMYCIN D [Suspect]
     Active Substance: DACTINOMYCIN
     Indication: Alveolar soft part sarcoma metastatic
     Dosage: UNK, AS A PART OF VAC-A REGIMEN; 4 CYCLES
     Route: 065
     Dates: start: 2017
  10. CYCLOPHOSPHAMIDE [Suspect]
     Active Substance: CYCLOPHOSPHAMIDE
     Indication: Alveolar soft part sarcoma metastatic
     Dosage: UNK, AS A PART OF VAC-A REGIMEN; 4 CYCLES
     Route: 065
     Dates: start: 2017
  11. CYCLOPHOSPHAMIDE [Suspect]
     Active Substance: CYCLOPHOSPHAMIDE
     Dosage: UNK, AS A PART OF TCV REGIMEN
     Route: 065
     Dates: start: 2019
  12. DOXORUBICIN [Suspect]
     Active Substance: DOXORUBICIN
     Indication: Alveolar soft part sarcoma metastatic
     Dosage: UNK, AS A PART OF VAC-A REGIMEN; 4 CYCLES
     Route: 065
     Dates: start: 2017
  13. CARBOPLATIN [Suspect]
     Active Substance: CARBOPLATIN
     Indication: Alveolar soft part sarcoma metastatic
     Dosage: UNK, AS A PART OF ICE REGIMEN
     Route: 065
     Dates: start: 2018
  14. PAZOPANIB [Suspect]
     Active Substance: PAZOPANIB
     Indication: Alveolar soft part sarcoma metastatic
     Dosage: 800 MILLIGRAM, QD
     Route: 065
     Dates: start: 2018
  15. PAZOPANIB [Suspect]
     Active Substance: PAZOPANIB
     Dosage: UNK
     Route: 065
     Dates: start: 2023
  16. TOPOTECAN [Suspect]
     Active Substance: TOPOTECAN HYDROCHLORIDE
     Indication: Alveolar soft part sarcoma metastatic
     Dosage: UNK, AS A PART OF TCV REGIMEN
     Route: 065
     Dates: start: 2019
  17. IRINOTECAN [Suspect]
     Active Substance: IRINOTECAN
     Indication: Alveolar soft part sarcoma metastatic
     Dosage: UNK, AS A PART OF VIT REGIMEN
     Route: 065
     Dates: start: 2020
  18. TEMOZOLOMIDE [Suspect]
     Active Substance: TEMOZOLOMIDE
     Indication: Alveolar soft part sarcoma metastatic
     Dosage: UNK, AS A PART OF VIT REGIMEN
     Route: 065
     Dates: start: 2020

REACTIONS (4)
  - Neoplasm progression [Unknown]
  - Neutropenia [Unknown]
  - Transaminases increased [Unknown]
  - Off label use [Unknown]
